FAERS Safety Report 10970771 (Version 2)
Quarter: 2015Q2

REPORT INFORMATION
  Report Type: Report from Study
  Country: JP (occurrence: JP)
  Receive Date: 20150331
  Receipt Date: 20150608
  Transmission Date: 20150821
  Serious: Yes (Life-Threatening, Hospitalization)
  Sender: FDA-Public Use
  Company Number: JP-BAYER-2015-021588

PATIENT
  Age: 75 Year
  Sex: Male
  Weight: 48 kg

DRUGS (9)
  1. STIVARGA [Suspect]
     Active Substance: REGORAFENIB
     Indication: RECTAL CANCER
     Dosage: 120 MG, QD 3 WEEKS AND OFF FOR 1 WEEK.
     Route: 048
     Dates: start: 20150122, end: 20150211
  2. NOVOLIN 30R [Suspect]
     Active Substance: INSULIN HUMAN
     Dosage: DAILY DOSE 21 IU
  3. KRESTIN [Concomitant]
     Active Substance: POLYSACCHARIDES
     Indication: RECTAL CANCER
     Dosage: DAILY DOSE 3 G
     Route: 048
  4. HIRUDOID [Concomitant]
     Active Substance: GLYCOSAMINOGLYCANS
     Indication: DRUG TOXICITY PROPHYLAXIS
     Dosage: UNK
     Route: 061
     Dates: start: 20150122
  5. GASTER [Concomitant]
     Active Substance: FAMOTIDINE
     Indication: GASTRITIS PROPHYLAXIS
     Dosage: DAILY DOSE 20 MG
     Route: 048
  6. NU-LOTAN [Concomitant]
     Active Substance: LOSARTAN POTASSIUM
     Dosage: DAILY DOSE 50 MG
     Route: 048
  7. CONIEL [Concomitant]
     Active Substance: BENIDIPINE HYDROCHLORIDE
     Dosage: DAILY DOSE 4 MG
     Route: 048
  8. VOGLIBOSE [Concomitant]
     Active Substance: VOGLIBOSE
     Dosage: DAILY DOSE .3 MG
     Route: 048
  9. CEPHARANTHINE [Concomitant]
     Active Substance: CEPHARANTHINE
     Indication: PROPHYLAXIS
     Dosage: DAILY DOSE 3 MG
     Route: 048

REACTIONS (1)
  - Hypoglycaemia [Recovering/Resolving]

NARRATIVE: CASE EVENT DATE: 20150204
